FAERS Safety Report 6775507-2 (Version None)
Quarter: 2010Q2

REPORT INFORMATION
  Report Type: 
  Country: None (occurrence: None)
  Receive Date: 20100617
  Receipt Date: 20100614
  Transmission Date: 20101027
  Serious: Yes (Hospitalization)
  Sender: FDA-Public Use
  Company Number: FR-BRISTOL-MYERS SQUIBB COMPANY-15146673

PATIENT
  Age: 80 Year
  Sex: Female

DRUGS (6)
  1. BUSPAR [Suspect]
     Indication: HALLUCINATION, VISUAL
     Route: 048
     Dates: start: 20091021, end: 20091116
  2. ATHYMIL [Suspect]
     Indication: HALLUCINATION, VISUAL
     Dates: start: 20091021
  3. MELATONIN [Suspect]
     Indication: HALLUCINATION, VISUAL
     Dates: start: 20091021, end: 20091116
  4. MEMANTINE HCL [Suspect]
  5. NORSET [Concomitant]
  6. CARDENSIEL [Concomitant]

REACTIONS (5)
  - CONFUSIONAL STATE [None]
  - DELIRIUM [None]
  - INSOMNIA [None]
  - PSYCHOMOTOR HYPERACTIVITY [None]
  - SPEECH DISORDER [None]
